FAERS Safety Report 8045241-X (Version None)
Quarter: 2012Q1

REPORT INFORMATION
  Report Type: 
  Country: None (occurrence: None)
  Receive Date: 20120110
  Receipt Date: 20110118
  Transmission Date: 20120608
  Serious: Yes (Death)
  Sender: FDA-Public Use
  Company Number: OTH-SPN-2011001

PATIENT
  Sex: Female

DRUGS (7)
  1. LEVOCARITINE [Concomitant]
  2. FOLIC ACID [Concomitant]
  3. ENALAPRIL MALEATE [Concomitant]
  4. PEPCID [Concomitant]
  5. KEPPRA [Concomitant]
  6. CYSTADANE [Suspect]
     Indication: HOMOCYSTINURIA
     Dosage: 1.300 G EVERY DAY
  7. ASPIRIN [Concomitant]

REACTIONS (2)
  - CEREBROVASCULAR ACCIDENT [None]
  - GENERAL PHYSICAL HEALTH DETERIORATION [None]
